FAERS Safety Report 20889081 (Version 1)
Quarter: 2022Q2

REPORT INFORMATION
  Report Type: Report from Study
  Country: US (occurrence: US)
  Receive Date: 20220530
  Receipt Date: 20220530
  Transmission Date: 20220721
  Serious: Yes (Hospitalization)
  Sender: FDA-Public Use
  Company Number: US-BRISTOL-MYERS SQUIBB COMPANY-2022-043510

PATIENT
  Age: 58 Year
  Sex: Female
  Weight: 82.1 kg

DRUGS (4)
  1. REVLIMID [Suspect]
     Active Substance: LENALIDOMIDE
     Indication: Plasma cell myeloma
     Route: 048
     Dates: start: 20200214
  2. DEPO-PROVERA [Concomitant]
     Active Substance: MEDROXYPROGESTERONE ACETATE
     Indication: Product used for unknown indication
  3. ASPIRIN [Concomitant]
     Active Substance: ASPIRIN
     Indication: Product used for unknown indication
  4. CALCIUM IPODATE [Concomitant]
     Indication: Product used for unknown indication

REACTIONS (6)
  - Contusion [Unknown]
  - Blood blister [Unknown]
  - Platelet count decreased [Unknown]
  - Product administration interrupted [Unknown]
  - Thrombocytopenic purpura [Unknown]
  - Immune system disorder [Unknown]
